FAERS Safety Report 10073083 (Version 1)
Quarter: 2014Q2

REPORT INFORMATION
  Report Type: Spontaneous
  Country: IT (occurrence: IT)
  Receive Date: 20140411
  Receipt Date: 20140411
  Transmission Date: 20141212
  Serious: Yes (Other)
  Sender: FDA-Public Use
  Company Number: IT-WATSON-2014-06854

PATIENT
  Age: 24 Year
  Sex: Female

DRUGS (4)
  1. LORAZEPAM (UNKNOWN) [Suspect]
     Indication: PERSONALITY DISORDER
     Dosage: UNK
     Route: 048
     Dates: start: 20140121, end: 20140121
  2. LORAZEPAM (UNKNOWN) [Suspect]
     Dosage: 1 MG, DAILY
     Route: 048
     Dates: start: 20130921
  3. ZOLOFT [Suspect]
     Indication: PERSONALITY DISORDER
     Dosage: 1-2 PACKS
     Route: 048
     Dates: start: 20140121, end: 20140121
  4. ZOLOFT [Suspect]
     Dosage: 50 MG, DAILY
     Route: 048
     Dates: start: 20130921

REACTIONS (4)
  - Sluggishness [Recovering/Resolving]
  - Electrocardiogram abnormal [Recovering/Resolving]
  - Drug abuse [Recovering/Resolving]
  - Intentional overdose [Recovering/Resolving]
